FAERS Safety Report 9149105 (Version 1)
Quarter: 2013Q1

REPORT INFORMATION
  Report Type: Report from Study
  Country: JP (occurrence: JP)
  Receive Date: 20130308
  Receipt Date: 20130308
  Transmission Date: 20140127
  Serious: Yes (Hospitalization)
  Sender: FDA-Public Use
  Company Number: JP-MERCK-1303JPN003415

PATIENT
  Age: 43 Year
  Sex: Female

DRUGS (5)
  1. REFLEX [Suspect]
     Indication: DEPRESSION
     Dosage: 7.5 MG, QD
     Route: 048
     Dates: start: 20110907, end: 20110926
  2. REFLEX [Suspect]
     Dosage: 15 MG, QD
     Route: 048
     Dates: start: 20110927, end: 20111010
  3. REFLEX [Suspect]
     Dosage: 30 MG, QD
     Route: 048
     Dates: start: 20111011, end: 20111126
  4. MYSLEE [Suspect]
     Indication: INITIAL INSOMNIA
     Dosage: 5 MG, QD
     Route: 048
     Dates: start: 20110915, end: 20110926
  5. MYSLEE [Suspect]
     Dosage: 10 MG, QD
     Route: 048
     Dates: start: 20110927, end: 20111126

REACTIONS (1)
  - Intentional overdose [Recovered/Resolved]
